FAERS Safety Report 8128137-4 (Version None)
Quarter: 2011Q4

REPORT INFORMATION
  Report Type: 
  Country: None (occurrence: None)
  Receive Date: 20111227
  Receipt Date: 20110920
  Transmission Date: 20120403
  Serious: No
  Sender: FDA-Public Use
  Company Number: PHHY2011US61187

PATIENT
  Sex: Female

DRUGS (5)
  1. AMBIEN [Concomitant]
  2. GILENYA [Suspect]
     Indication: MULTIPLE SCLEROSIS
     Dosage: 0.5 MG, QD, ORAL
     Route: 048
  3. CITALOPRAM HYDROBROMIDE [Concomitant]
  4. NUVIGIL [Concomitant]
  5. ASPIRIN [Concomitant]

REACTIONS (2)
  - CHEST PAIN [None]
  - CHEST DISCOMFORT [None]
